FAERS Safety Report 4796017-8 (Version None)
Quarter: 2005Q4

REPORT INFORMATION
  Report Type: 
  Country: None (occurrence: None)
  Receive Date: 20051012
  Receipt Date: 20050929
  Transmission Date: 20060501
  Serious: Yes (Hospitalization, Other)
  Sender: FDA-Public Use
  Company Number: US-MERCK-0510USA00434

PATIENT
  Age: 70 Year
  Sex: Female

DRUGS (6)
  1. VYTORIN [Suspect]
     Indication: BLOOD CHOLESTEROL INCREASED
     Route: 048
     Dates: start: 20050915
  2. COUMADIN [Concomitant]
     Route: 065
     Dates: start: 20050915
  3. COUMADIN [Concomitant]
     Route: 065
     Dates: end: 20050914
  4. COUMADIN [Concomitant]
     Route: 065
     Dates: end: 20050914
  5. MAXZIDE [Suspect]
     Route: 065
     Dates: start: 20050915
  6. TEGRETOL [Concomitant]
     Route: 065

REACTIONS (3)
  - BLOOD SODIUM DECREASED [None]
  - INTERNATIONAL NORMALISED RATIO INCREASED [None]
  - SYNCOPE [None]
